FAERS Safety Report 4279070-X (Version None)
Quarter: 2004Q1

REPORT INFORMATION
  Report Type: 
  Country: None (occurrence: None)
  Receive Date: 20040126
  Receipt Date: 20040119
  Transmission Date: 20041129
  Serious: Yes (Hospitalization)
  Sender: FDA-Public Use
  Company Number: PHRM2004FR00595

PATIENT
  Age: 83 Year
  Sex: Female

DRUGS (7)
  1. LAMISIL [Suspect]
     Dosage: 250 MG / DAY
     Route: 048
     Dates: start: 20031207
  2. PREVISCAN [Suspect]
     Dosage: 5 MG /DAY
     Route: 048
     Dates: end: 20031209
  3. ZYRTEC [Concomitant]
     Dosage: 10 MG / DAY
     Route: 048
     Dates: start: 20031207
  4. BROMAZEPAM [Concomitant]
     Dosage: UNK, UNK
     Route: 048
  5. IKOREL [Concomitant]
     Dosage: UNK, UNK
     Route: 048
  6. TOPALGIC [Concomitant]
     Dosage: UNK, UNK
     Route: 048
  7. VENTOLIN [Concomitant]
     Dosage: UNK, UNK

REACTIONS (10)
  - ABDOMINAL HAEMATOMA [None]
  - ACTIVATED PARTIAL THROMBOPLASTIN TIME PROLONGED [None]
  - DRUG INTERACTION [None]
  - HAEMOGLOBIN DECREASED [None]
  - HEART RATE INCREASED [None]
  - INTERNATIONAL NORMALISED RATIO INCREASED [None]
  - PYREXIA [None]
  - RED BLOOD CELL COUNT DECREASED [None]
  - SKIN LESION [None]
  - TACHYCARDIA [None]
